FAERS Safety Report 5592839-4 (Version None)
Quarter: 2008Q1

REPORT INFORMATION
  Report Type: 
  Country: None (occurrence: None)
  Receive Date: 20080116
  Receipt Date: 20080108
  Transmission Date: 20080703
  Serious: Yes (Hospitalization)
  Sender: FDA-Public Use
  Company Number: PHRM2008FR00515

PATIENT
  Age: 80 Year
  Sex: Male

DRUGS (5)
  1. TRILEPTAL [Suspect]
     Indication: EPILEPSY
     Dosage: 300 MG, BID
     Route: 048
  2. ACUITEL [Suspect]
     Indication: HYPERTENSION
     Dosage: 20 MG, QD
     Route: 048
  3. TENORMIN [Suspect]
     Indication: HYPERTENSION
     Dosage: 75 MG, QD
     Route: 048
  4. SELEGILINE HCL [Suspect]
     Indication: EPILEPSY
     Dosage: 5 MG, BID
     Route: 065
     Dates: end: 20071011
  5. LASIX [Suspect]
     Indication: HYPERTENSION
     Dosage: 40 MG/DAY
     Dates: start: 20071007, end: 20071001

REACTIONS (14)
  - BLOOD CREATININE INCREASED [None]
  - BLOOD FIBRINOGEN INCREASED [None]
  - BRADYCARDIA [None]
  - BUNDLE BRANCH BLOCK RIGHT [None]
  - C-REACTIVE PROTEIN INCREASED [None]
  - DYSPNOEA [None]
  - ELECTROCARDIOGRAM REPOLARISATION ABNORMALITY [None]
  - FIBRIN D DIMER INCREASED [None]
  - HYPOTENSION [None]
  - INFLAMMATION [None]
  - LUNG INFECTION [None]
  - MALAISE [None]
  - PRODUCTIVE COUGH [None]
  - PYREXIA [None]
